FAERS Safety Report 12780527 (Version 4)
Quarter: 2016Q4

REPORT INFORMATION
  Report Type: Spontaneous
  Country: US (occurrence: US)
  Receive Date: 20160926
  Receipt Date: 20161026
  Transmission Date: 20170207
  Serious: Yes (Other)
  Sender: FDA-Public Use
  Company Number: US-BAYER-2016-184608

PATIENT
  Age: 57 Year
  Sex: Female

DRUGS (1)
  1. CLIMARA PRO [Suspect]
     Active Substance: ESTRADIOL\LEVONORGESTREL
     Dosage: 0.045MG/0.015MG
     Route: 062

REACTIONS (5)
  - Migraine [Unknown]
  - Product adhesion issue [None]
  - Device defective [None]
  - Mental impairment [Unknown]
  - Product physical issue [None]

NARRATIVE: CASE EVENT DATE: 201609
